FAERS Safety Report 4357101-6 (Version None)
Quarter: 2004Q2

REPORT INFORMATION
  Report Type: 
  Country: None (occurrence: None)
  Receive Date: 20040507
  Receipt Date: 20040428
  Transmission Date: 20050107
  Serious: Yes (Hospitalization)
  Sender: FDA-Public Use
  Company Number: JP-SHR-04-024712

PATIENT
  Age: 64 Year
  Sex: 0

DRUGS (1)
  1. FLUDARA [Suspect]
     Indication: NON-HODGKIN'S LYMPHOMA

REACTIONS (1)
  - MYELODYSPLASTIC SYNDROME [None]
